FAERS Safety Report 7211351-X (Version None)
Quarter: 2010Q4

REPORT INFORMATION
  Report Type: 
  Country: None (occurrence: None)
  Receive Date: 20101223
  Receipt Date: 20101214
  Transmission Date: 20110411
  Serious: Yes (Other)
  Sender: FDA-Public Use
  Company Number: 2010MA005377

PATIENT
  Age: 25 Year
  Sex: Female

DRUGS (7)
  1. SERTRALINE HYDROCHLORIDE [Suspect]
     Dates: start: 20100909
  2. AMITRIPTYLINE HCL [Concomitant]
  3. FLOXACILLIN SODIUM [Concomitant]
  4. LOCORTEN-VIOFORM [Concomitant]
  5. ESCITALOPRAM [Concomitant]
  6. MOMETASONE FUROATE [Concomitant]
  7. SERTRALINE [Concomitant]

REACTIONS (1)
  - RASH [None]
